FAERS Safety Report 19971517 (Version 1)
Quarter: 2021Q4

REPORT INFORMATION
  Report Type: Report from Study
  Country: FR (occurrence: FR)
  Receive Date: 20211019
  Receipt Date: 20211019
  Transmission Date: 20220303
  Serious: Yes (Other)
  Sender: FDA-Public Use
  Company Number: FR-GLAXOSMITHKLINE-FR2021210638

PATIENT
  Age: 51 Year
  Sex: Male
  Weight: 90 kg

DRUGS (20)
  1. DOSTARLIMAB [Suspect]
     Active Substance: DOSTARLIMAB
     Indication: Non-small cell lung cancer
     Dosage: DOSE AT CYCLE 1 - DAY 1
     Dates: start: 20210811, end: 20210811
  2. DOSTARLIMAB [Suspect]
     Active Substance: DOSTARLIMAB
     Dosage: DOSE AT DAY 1
     Dates: start: 20210901, end: 20210901
  3. DOSTARLIMAB [Suspect]
     Active Substance: DOSTARLIMAB
     Dosage: DOSE AT DAY 1
     Dates: start: 20210922, end: 20210922
  4. PEMETREXED [Suspect]
     Active Substance: PEMETREXED
     Indication: Non-small cell lung cancer
     Dosage: DOSE AT CYCLE 1 - DAY 1
     Route: 042
     Dates: start: 20210811, end: 20210811
  5. PEMETREXED [Suspect]
     Active Substance: PEMETREXED
     Dosage: DOSE AT DAY 1
     Route: 042
     Dates: start: 20210901, end: 20210901
  6. PEMETREXED [Suspect]
     Active Substance: PEMETREXED
     Dosage: DOSE AT DAY 1
     Route: 042
     Dates: start: 20210922, end: 20210922
  7. CISPLATIN [Suspect]
     Active Substance: CISPLATIN
     Indication: Non-small cell lung cancer
     Dosage: DOSE AT CYCLE 1 - DAY 1
     Route: 042
     Dates: start: 20210811, end: 20210811
  8. CISPLATIN [Suspect]
     Active Substance: CISPLATIN
     Dosage: DOSE AT DAY 1
     Route: 042
     Dates: start: 20210901, end: 20210901
  9. CISPLATIN [Suspect]
     Active Substance: CISPLATIN
     Dosage: DOSE AT DAY 1
     Route: 042
     Dates: start: 20210922, end: 20210922
  10. RAMIPRIL [Suspect]
     Active Substance: RAMIPRIL
     Indication: Product used for unknown indication
     Dosage: UNK
     Dates: start: 20210615, end: 20211008
  11. KARDEGIC [Concomitant]
     Active Substance: ASPIRIN DL-LYSINE
     Indication: Myocardial infarction
     Dosage: 75 MG, QD
     Route: 048
     Dates: start: 20191115
  12. EZETIMIBE\ROSUVASTATIN [Concomitant]
     Active Substance: EZETIMIBE\ROSUVASTATIN
     Indication: Dyslipidaemia
     Dosage: 10/10 MG (FREQUENCY = ONCE DAILY)
     Route: 048
     Dates: start: 20210615
  13. REPATHA [Concomitant]
     Active Substance: EVOLOCUMAB
     Indication: Dyslipidaemia
     Dosage: 2 INJECTIONS (FREQUENCY = EVERY MONTH)
     Route: 058
     Dates: start: 20210503
  14. LIDOCAINE PATCH [Concomitant]
     Active Substance: LIDOCAINE
     Indication: Pain prophylaxis
     Dosage: 1 PATCH (FREQUENCY = OTHER: EVERY 3 WEEKS)
     Route: 061
     Dates: start: 20210811
  15. FOLIC ACID [Concomitant]
     Active Substance: FOLIC ACID
     Indication: Chemotherapy side effect prophylaxis
     Dosage: 0.4 MG, QD
     Route: 048
     Dates: start: 20210811
  16. VITAMIN B12 [Concomitant]
     Active Substance: CYANOCOBALAMIN
     Indication: Chemotherapy side effect prophylaxis
     Dosage: 2000 UG (FREQUENCY = OTHER: EVERY 9 WEEKS)
     Route: 048
     Dates: start: 20210811
  17. PRIMPERAN [Concomitant]
     Active Substance: METOCLOPRAMIDE HYDROCHLORIDE
     Dosage: UNK
     Dates: start: 20210923, end: 20211002
  18. ESOMEPRAZOLE. [Concomitant]
     Active Substance: ESOMEPRAZOLE MAGNESIUM
     Dosage: UNK
     Dates: start: 20210923, end: 20211002
  19. SODIUM BICARBONATE [Concomitant]
     Active Substance: SODIUM BICARBONATE
     Dosage: UNK
     Dates: start: 20210923, end: 20211007
  20. CARAFATE [Concomitant]
     Active Substance: SUCRALFATE
     Dosage: UNK
     Dates: start: 20210923, end: 20211007

REACTIONS (1)
  - Angioedema [Recovered/Resolved]

NARRATIVE: CASE EVENT DATE: 20211009
